FAERS Safety Report 6125543-4 (Version None)
Quarter: 2009Q1

REPORT INFORMATION
  Report Type: 
  Country: None (occurrence: None)
  Receive Date: 20090320
  Receipt Date: 20090312
  Transmission Date: 20090719
  Serious: Yes (Other)
  Sender: FDA-Public Use
  Company Number: US-SANOFI-SYNTHELABO-A03200901148

PATIENT
  Sex: Female
  Weight: 136.05 kg

DRUGS (3)
  1. PLAVIX [Suspect]
     Indication: CARDIAC FAILURE
     Route: 048
     Dates: start: 20070101
  2. VESICARE [Concomitant]
     Indication: POLLAKIURIA
     Dosage: UNK
     Route: 065
     Dates: start: 20090309, end: 20090310
  3. VESICARE [Concomitant]
     Indication: RENAL DISORDER
     Dosage: UNK
     Route: 065
     Dates: start: 20090309, end: 20090310

REACTIONS (2)
  - RASH [None]
  - THROMBOSIS [None]
